FAERS Safety Report 6512035-3 (Version None)
Quarter: 2009Q4

REPORT INFORMATION
  Report Type: 
  Country: None (occurrence: None)
  Receive Date: 20091222
  Receipt Date: 20090519
  Transmission Date: 20100525
  Serious: No
  Sender: FDA-Public Use
  Company Number: US-ASTRAZENECA-2009UW12980

PATIENT
  Age: 70 Year
  Sex: Male
  Weight: 88.5 kg

DRUGS (8)
  1. CRESTOR [Suspect]
     Indication: BLOOD CHOLESTEROL INCREASED
     Route: 048
  2. ASPIRIN [Concomitant]
     Indication: CARDIAC DISORDER
  3. AVAPRO [Concomitant]
  4. FLOMAX [Concomitant]
     Indication: HYPERTONIC BLADDER
  5. IMDUR [Concomitant]
  6. LOPRESSOR [Concomitant]
     Indication: CARDIAC DISORDER
  7. PLAVIX [Concomitant]
     Indication: CARDIAC DISORDER
  8. TRICOR [Concomitant]
     Indication: BLOOD CHOLESTEROL INCREASED

REACTIONS (2)
  - CONSTIPATION [None]
  - FAECES HARD [None]
